FAERS Safety Report 6063645-1 (Version None)
Quarter: 2009Q1

REPORT INFORMATION
  Report Type: 
  Country: None (occurrence: None)
  Receive Date: 20090129
  Receipt Date: 20090116
  Transmission Date: 20090719
  Serious: Yes (Hospitalization)
  Sender: FDA-Public Use
  Company Number: 2009S1001040

PATIENT
  Age: 58 Year
  Sex: Female

DRUGS (3)
  1. FEXOFENADINE HYDROCHLORIDE TABLETS [Suspect]
  2. TROSPIUM [Suspect]
     Indication: HYPERTONIC BLADDER
     Dosage: 20 MG; DAILY
  3. HYDROCHLOROTHIAZIDE [Suspect]

REACTIONS (1)
  - GRAND MAL CONVULSION [None]
